FAERS Safety Report 14571426 (Version 4)
Quarter: 2018Q2

REPORT INFORMATION
  Report Type: Report from Study
  Country: CA (occurrence: CA)
  Receive Date: 20180226
  Receipt Date: 20180411
  Transmission Date: 20180711
  Serious: Yes (Death, Hospitalization, Other)
  Sender: FDA-Public Use
  Company Number: PHHY2016CA003964

PATIENT
  Age: 46 Year
  Sex: Male

DRUGS (5)
  1. SANDOSTATIN LAR DEPOT [Suspect]
     Active Substance: OCTREOTIDE ACETATE
     Indication: CARCINOID TUMOUR
     Dosage: 30 MG, QMO (EVERY 4 WEEKS)
     Route: 030
     Dates: start: 20151019, end: 20180313
  2. GABAPENTIN. [Concomitant]
     Active Substance: GABAPENTIN
     Indication: PRODUCT USED FOR UNKNOWN INDICATION
     Dosage: 300 MG, TID
     Route: 065
     Dates: start: 201709
  3. DILAUDID [Concomitant]
     Active Substance: HYDROMORPHONE HYDROCHLORIDE
     Indication: PRODUCT USED FOR UNKNOWN INDICATION
     Dosage: 6 MG, TID
     Route: 065
  4. HYDROMORPHONE [Concomitant]
     Active Substance: HYDROMORPHONE
     Indication: PRODUCT USED FOR UNKNOWN INDICATION
     Dosage: 2 MG, Q4H
     Route: 065
     Dates: start: 201709
  5. DILAUDID [Concomitant]
     Active Substance: HYDROMORPHONE HYDROCHLORIDE
     Dosage: 3 MG, PRN
     Route: 065

REACTIONS (24)
  - Death [Fatal]
  - Pneumonia [Unknown]
  - Back pain [Unknown]
  - Bone cancer [Unknown]
  - Blood pressure systolic increased [Unknown]
  - Metastases to bone [Unknown]
  - Pain in extremity [Recovering/Resolving]
  - Arthralgia [Unknown]
  - Sensory loss [Unknown]
  - Multiple organ dysfunction syndrome [Unknown]
  - Hypertension [Recovering/Resolving]
  - Somnolence [Unknown]
  - Pelvic pain [Unknown]
  - Malignant neoplasm progression [Unknown]
  - Gait disturbance [Unknown]
  - Rash [Unknown]
  - Peripheral swelling [Unknown]
  - Heart rate increased [Unknown]
  - Spinal fracture [Unknown]
  - Respiratory rate increased [Unknown]
  - Pain [Recovering/Resolving]
  - Diabetes mellitus [Unknown]
  - Blood glucose increased [Recovered/Resolved]
  - Candida infection [Unknown]

NARRATIVE: CASE EVENT DATE: 20160111
